FAERS Safety Report 25070317 (Version 1)
Quarter: 2025Q1

REPORT INFORMATION
  Report Type: Spontaneous
  Country: CN (occurrence: CN)
  Receive Date: 20250312
  Receipt Date: 20250312
  Transmission Date: 20250409
  Serious: Yes (Life-Threatening)
  Sender: COSETTE PHARMACEUTICALS INC
  Company Number: CN-SA-2025SA062714

PATIENT

DRUGS (1)
  1. AMBIEN [Suspect]
     Active Substance: ZOLPIDEM TARTRATE
     Indication: Sleep disorder
     Route: 048
     Dates: start: 20250111, end: 20250112

REACTIONS (1)
  - Toxicity to various agents [Recovering/Resolving]

NARRATIVE: CASE EVENT DATE: 20250111
